APPROVED DRUG PRODUCT: CETIRIZINE HYDROCHLORIDE
Active Ingredient: CETIRIZINE HYDROCHLORIDE
Strength: 5MG/5ML
Dosage Form/Route: SOLUTION;ORAL
Application: A090751 | Product #001
Applicant: AUROBINDO PHARMA LTD
Approved: Dec 16, 2009 | RLD: No | RS: No | Type: DISCN